FAERS Safety Report 9977474 (Version 1)
Quarter: 2014Q1

REPORT INFORMATION
  Report Type: Report from Study
  Country: US (occurrence: US)
  Receive Date: 20140306
  Receipt Date: 20140306
  Transmission Date: 20141002
  Serious: No
  Sender: FDA-Public Use
  Company Number: US-ABBVIE-13P-163-1163090-00

PATIENT
  Age: 64 Year
  Sex: Male
  Weight: 78.54 kg

DRUGS (10)
  1. HUMIRA [Suspect]
     Indication: CROHN^S DISEASE
     Route: 058
     Dates: start: 20130912
  2. LAMOTRIGINE [Concomitant]
     Indication: DEPRESSION
  3. ABILIFY [Concomitant]
     Indication: DEPRESSION
  4. MIRTAZAPINE [Concomitant]
     Indication: DEPRESSION
  5. ASACOL [Concomitant]
     Indication: CROHN^S DISEASE
  6. OMEPRAZOLE [Concomitant]
     Indication: GASTROOESOPHAGEAL REFLUX DISEASE
  7. VICODIN [Concomitant]
     Indication: ARTHRALGIA
  8. VITAMIN B 12 [Concomitant]
     Indication: VITAMIN SUPPLEMENTATION
  9. IRON [Concomitant]
     Indication: MINERAL SUPPLEMENTATION
  10. VITAMIN D [Concomitant]
     Indication: VITAMIN SUPPLEMENTATION

REACTIONS (2)
  - Incorrect dose administered [Recovered/Resolved]
  - Incorrect dose administered [Recovered/Resolved]
